FAERS Safety Report 16682119 (Version 8)
Quarter: 2019Q4

REPORT INFORMATION
  Report Type: Spontaneous
  Country: US (occurrence: US)
  Receive Date: 20190808
  Receipt Date: 20191111
  Transmission Date: 20200122
  Serious: Yes (Hospitalization, Other)
  Sender: FDA-Public Use
  Company Number: US-PFIZER INC-2019335132

PATIENT
  Age: 58 Year
  Sex: Female
  Weight: 67 kg

DRUGS (2)
  1. LYRICA [Suspect]
     Active Substance: PREGABALIN
     Indication: NEUROPATHY PERIPHERAL
     Dosage: 100 MG, 3X/DAY
     Route: 048
     Dates: end: 201806
  2. LYRICA [Suspect]
     Active Substance: PREGABALIN
     Dosage: 100 MG, 3X/DAY
     Route: 048
     Dates: start: 201909

REACTIONS (25)
  - Intracranial aneurysm [Not Recovered/Not Resolved]
  - Dehydration [Unknown]
  - Loss of consciousness [Unknown]
  - Fibromuscular dysplasia [Unknown]
  - Osteoporosis [Unknown]
  - Delayed recovery from anaesthesia [Recovered/Resolved]
  - Confusional state [Not Recovered/Not Resolved]
  - Pelvic fracture [Unknown]
  - Therapeutic product effect incomplete [Unknown]
  - Gastrointestinal disorder [Unknown]
  - Nausea [Unknown]
  - Skin lesion [Unknown]
  - Narcolepsy [Unknown]
  - Seizure [Unknown]
  - Weight decreased [Unknown]
  - Contusion [Unknown]
  - Disturbance in attention [Unknown]
  - Memory impairment [Not Recovered/Not Resolved]
  - Restless legs syndrome [Unknown]
  - Partial seizures [Unknown]
  - Reading disorder [Unknown]
  - Sleep disorder [Unknown]
  - Restlessness [Unknown]
  - Eating disorder [Unknown]
  - Decreased appetite [Unknown]

NARRATIVE: CASE EVENT DATE: 201604
